FAERS Safety Report 8380134-X (Version None)
Quarter: 2012Q2

REPORT INFORMATION
  Report Type: 
  Country: None (occurrence: None)
  Receive Date: 20120523
  Receipt Date: 20120515
  Transmission Date: 20120825
  Serious: No
  Sender: FDA-Public Use
  Company Number: US-ASTRAZENECA-2012SE25640

PATIENT
  Age: 73 Year
  Sex: Female

DRUGS (2)
  1. UNSPECIFIED OVER THE COUNTER MEDICATION [Suspect]
     Route: 065
  2. NEXIUM [Suspect]
     Route: 048

REACTIONS (7)
  - ERUCTATION [None]
  - INTENTIONAL DRUG MISUSE [None]
  - REGURGITATION [None]
  - HYPERTENSION [None]
  - FLATULENCE [None]
  - GASTRIC DISORDER [None]
  - DYSPEPSIA [None]
